FAERS Safety Report 5100548-0 (Version None)
Quarter: 2006Q3

REPORT INFORMATION
  Report Type: 
  Country: None (occurrence: None)
  Receive Date: 20060909
  Receipt Date: 20060830
  Transmission Date: 20061208
  Serious: Yes (Death, Other)
  Sender: FDA-Public Use
  Company Number: US-ABBOTT-06P-163-0343081-00

PATIENT
  Age: 45 Year
  Sex: Female

DRUGS (1)
  1. NORVIR [Suspect]
     Indication: DRUG USE FOR UNKNOWN INDICATION

REACTIONS (2)
  - HEPATOCELLULAR DAMAGE [None]
  - OPERATIVE HAEMORRHAGE [None]
